FAERS Safety Report 8124412-8 (Version None)
Quarter: 2012Q1

REPORT INFORMATION
  Report Type: 
  Country: None (occurrence: None)
  Receive Date: 20120209
  Receipt Date: 20120206
  Transmission Date: 20120608
  Serious: Yes (Hospitalization)
  Sender: FDA-Public Use
  Company Number: US-B.I. PHARMACEUTICALS,INC./RIDGEFIELD-2012-BP-00040BP

PATIENT
  Sex: Male

DRUGS (8)
  1. PRADAXA [Suspect]
     Indication: ATRIAL FIBRILLATION
     Dosage: 300 MG
     Route: 048
     Dates: start: 20111008, end: 20111224
  2. PRADAXA [Suspect]
     Dosage: 300 MG
     Route: 048
     Dates: start: 20111227, end: 20111229
  3. METOPROLOL [Concomitant]
     Indication: HYPERTENSION
  4. LIPITOR [Concomitant]
     Indication: BLOOD CHOLESTEROL INCREASED
  5. COQ 10 [Concomitant]
     Indication: SUPPLEMENTATION THERAPY
     Route: 048
  6. DIGOXIN [Concomitant]
  7. PRADAXA [Suspect]
     Dosage: 150 MG
     Route: 048
     Dates: start: 20111230, end: 20120101
  8. FLOMAX [Concomitant]

REACTIONS (2)
  - BLOOD URINE PRESENT [None]
  - LOSS OF CONSCIOUSNESS [None]
